FAERS Safety Report 14662284 (Version 2)
Quarter: 2018Q4

REPORT INFORMATION
  Report Type: Spontaneous
  Country: GB (occurrence: GB)
  Receive Date: 20180321
  Receipt Date: 20181106
  Transmission Date: 20190204
  Serious: Yes (Other)
  Sender: FDA-Public Use
  Company Number: GB-CIPLA LTD.-2018GB11505

PATIENT

DRUGS (2)
  1. LEVONELLE                          /00318901/ [Concomitant]
     Active Substance: LEVONORGESTREL
     Indication: PRODUCT USED FOR UNKNOWN INDICATION
     Dosage: UNK
     Route: 065
  2. ESCITALOPRAM [Suspect]
     Active Substance: ESCITALOPRAM OXALATE
     Indication: PRODUCT USED FOR UNKNOWN INDICATION
     Dosage: 5 MG, UNK
     Route: 048
     Dates: start: 20180122

REACTIONS (4)
  - Arthralgia [Unknown]
  - Nasopharyngitis [Recovered/Resolved]
  - Bursitis [Not Recovered/Not Resolved]
  - Skin warm [Unknown]

NARRATIVE: CASE EVENT DATE: 20180125
